FAERS Safety Report 8493228-5 (Version None)
Quarter: 2012Q3

REPORT INFORMATION
  Report Type: 
  Country: None (occurrence: None)
  Receive Date: 20120706
  Receipt Date: 20120702
  Transmission Date: 20120928
  Serious: Yes (Other)
  Sender: FDA-Public Use
  Company Number: PHEH2012US010467

PATIENT
  Sex: Male

DRUGS (3)
  1. CYMBALTA [Concomitant]
     Dosage: 60 MG, DAILY
     Route: 048
  2. GILENYA [Suspect]
     Indication: MULTIPLE SCLEROSIS
     Dosage: 0.5 MG, QD
     Route: 048
     Dates: start: 20120517, end: 20120517
  3. PROVIGIL [Concomitant]
     Dosage: 200 MG, DAILY
     Route: 048

REACTIONS (6)
  - ELECTROCARDIOGRAM QT PROLONGED [None]
  - DIZZINESS [None]
  - BLOOD PRESSURE DECREASED [None]
  - SINUS BRADYCARDIA [None]
  - PRESYNCOPE [None]
  - ELECTROCARDIOGRAM ABNORMAL [None]
